FAERS Safety Report 11852375 (Version 1)
Quarter: 2015Q4

REPORT INFORMATION
  Report Type: Spontaneous
  Country: JP (occurrence: JP)
  Receive Date: 20151218
  Receipt Date: 20151218
  Transmission Date: 20160305
  Serious: Yes (Hospitalization, Other)
  Sender: FDA-Public Use
  Company Number: JP-MEDTRONIC-1045660

PATIENT
  Age: 52 Year
  Sex: Female

DRUGS (1)
  1. GABALON INTRATHECAL 0.05% [Suspect]
     Active Substance: BACLOFEN
     Indication: PRIMARY CEREBELLAR DEGENERATION
     Route: 037

REACTIONS (1)
  - Ovarian cyst [Recovered/Resolved]
